FAERS Safety Report 8317933-6 (Version None)
Quarter: 2012Q2

REPORT INFORMATION
  Report Type: 
  Country: None (occurrence: None)
  Receive Date: 20120427
  Receipt Date: 20120417
  Transmission Date: 20120825
  Serious: Yes (Hospitalization)
  Sender: FDA-Public Use
  Company Number: US-ELI_LILLY_AND_COMPANY-US201203007579

PATIENT
  Sex: Female

DRUGS (13)
  1. LEVOTHYROXINE SODIUM [Concomitant]
     Dosage: 137 MG, QD
  2. DONEPEZIL HCL [Concomitant]
     Dosage: 5 MG, QD
  3. FORTEO [Suspect]
     Indication: OSTEOPOROSIS
     Dosage: 20 UG, QD
     Dates: start: 20120201
  4. FISH OIL [Concomitant]
     Dosage: 1200 MG, UNK
  5. TEMAZEP [Concomitant]
     Dosage: 30 MG, QD
  6. OXYCODONE HCL [Concomitant]
     Dosage: 5 MG, UNK
  7. MIRAPEX [Concomitant]
     Dosage: 75 MG, QD
  8. GEMFIBROZIL [Concomitant]
     Dosage: 600 MG, BID
  9. LEXAPRO [Concomitant]
     Dosage: 10 MG, QD
  10. VITAMIN B-12 [Concomitant]
     Dosage: 125 MG, QD
  11. XANAX [Concomitant]
     Dosage: 0.5 MG, PRN
  12. IRON [Concomitant]
     Dosage: 227 MG, BID
  13. THEOLAIR [Concomitant]
     Dosage: 2000 MG, BID

REACTIONS (8)
  - SPINAL FRACTURE [None]
  - BONE DISORDER [None]
  - BACK PAIN [None]
  - MOBILITY DECREASED [None]
  - MALAISE [None]
  - DRUG DOSE OMISSION [None]
  - PAIN IN EXTREMITY [None]
  - ADVERSE EVENT [None]
